FAERS Safety Report 23119151 (Version 3)
Quarter: 2023Q4

REPORT INFORMATION
  Report Type: Spontaneous
  Country: ES (occurrence: ES)
  Receive Date: 20231028
  Receipt Date: 20231228
  Transmission Date: 20240110
  Serious: Yes (Other)
  Sender: FDA-Public Use
  Company Number: ES-CELGENE-ESP-20190200545

PATIENT
  Age: 79 Year
  Sex: Female

DRUGS (17)
  1. DEXAMETHASONE ACETATE [Suspect]
     Active Substance: DEXAMETHASONE ACETATE
     Indication: Plasma cell myeloma
     Dosage: 20 MG
     Route: 048
     Dates: start: 20190215, end: 20190512
  2. DEXAMETHASONE ACETATE [Suspect]
     Active Substance: DEXAMETHASONE ACETATE
     Dosage: 20 MG
     Route: 048
     Dates: start: 20181126, end: 20190214
  3. REVLIMID [Suspect]
     Active Substance: LENALIDOMIDE
     Dosage: 15.000MG QD
     Route: 048
     Dates: start: 20190318, end: 20190331
  4. REVLIMID [Suspect]
     Active Substance: LENALIDOMIDE
     Dosage: 15.000MG QD
     Route: 048
     Dates: start: 20190422, end: 20190512
  5. REVLIMID [Suspect]
     Active Substance: LENALIDOMIDE
     Indication: Plasma cell myeloma
     Dosage: 20.000MG QD
     Route: 048
     Dates: start: 20190218, end: 20190310
  6. REVLIMID [Suspect]
     Active Substance: LENALIDOMIDE
     Dosage: 20.000MG QD
     Route: 048
     Dates: start: 20181224, end: 20190113
  7. REVLIMID [Suspect]
     Active Substance: LENALIDOMIDE
     Dosage: 20.000MG QD
     Route: 048
     Dates: start: 20190121, end: 20190210
  8. REVLIMID [Suspect]
     Active Substance: LENALIDOMIDE
     Dosage: 25 MILLIGRAM
     Route: 048
     Dates: start: 20181126, end: 20181216
  9. ENOXAPARIN SODIUM [Concomitant]
     Active Substance: ENOXAPARIN SODIUM
     Indication: Thrombosis prophylaxis
     Dosage: 40 MILLIGRAM
     Route: 058
     Dates: start: 20181109
  10. ACETAMINOPHEN\TRAMADOL HYDROCHLORIDE [Concomitant]
     Active Substance: ACETAMINOPHEN\TRAMADOL HYDROCHLORIDE
     Dosage: 75 MILLIGRAM
     Route: 048
  11. ACETAMINOPHEN\TRAMADOL HYDROCHLORIDE [Concomitant]
     Active Substance: ACETAMINOPHEN\TRAMADOL HYDROCHLORIDE
     Indication: Osteoarthritis
     Dosage: 75 MILLIGRAM
     Route: 048
  12. IBUPROFEN [Concomitant]
     Active Substance: IBUPROFEN
     Indication: Osteoarthritis
     Dosage: 1200 MILLIGRAM
     Route: 048
  13. LEVOTHYROXINE [Concomitant]
     Active Substance: LEVOTHYROXINE
     Indication: Tracheomalacia
     Dosage: 100 MILLIGRAM
     Route: 048
  14. NEXIUM [Concomitant]
     Active Substance: ESOMEPRAZOLE MAGNESIUM
     Indication: Prophylaxis
     Dosage: 20 MILLIGRAM
     Route: 048
  15. ACETAMINOPHEN [Concomitant]
     Active Substance: ACETAMINOPHEN
     Dosage: 3 GRAM
     Route: 048
  16. ACETAMINOPHEN [Concomitant]
     Active Substance: ACETAMINOPHEN
     Indication: Osteoarthritis
     Dosage: 3 GRAM
     Route: 048
  17. MONTELUKAST SODIUM [Concomitant]
     Active Substance: MONTELUKAST SODIUM
     Indication: Asthma
     Dosage: 10 MILLIGRAM
     Route: 048

REACTIONS (1)
  - Neuropathy peripheral [Recovered/Resolved]

NARRATIVE: CASE EVENT DATE: 20190117
